FAERS Safety Report 18354443 (Version 1)
Quarter: 2020Q4

REPORT INFORMATION
  Report Type: Spontaneous
  Country: US (occurrence: US)
  Receive Date: 20201007
  Receipt Date: 20201007
  Transmission Date: 20210114
  Serious: Yes (Other)
  Sender: FDA-Public Use
  Company Number: US-PFIZER INC-2020383380

PATIENT
  Age: 66 Year
  Sex: Female

DRUGS (6)
  1. AZITHROMYCIN ANHYDROUS. [Concomitant]
     Active Substance: AZITHROMYCIN ANHYDROUS
     Indication: MYCOBACTERIUM CHELONAE INFECTION
     Dosage: UNK
  2. MINOCYCLINE [MINOCYCLINE HYDROCHLORIDE] [Concomitant]
     Indication: MYCOBACTERIUM CHELONAE INFECTION
     Dosage: UNK
  3. TOBRAMYCIN. [Suspect]
     Active Substance: TOBRAMYCIN
     Indication: MYCOBACTERIUM CHELONAE INFECTION
     Dosage: UNK
  4. CLARITHROMYCIN ^PCD^ [Concomitant]
     Active Substance: CLARITHROMYCIN
     Indication: MYCOBACTERIUM CHELONAE INFECTION
     Dosage: UNK
  5. CIPROFLOXACIN. [Concomitant]
     Active Substance: CIPROFLOXACIN
     Indication: MYCOBACTERIUM CHELONAE INFECTION
     Dosage: UNK
  6. ERYTHROMYCIN. [Concomitant]
     Active Substance: ERYTHROMYCIN
     Indication: MYCOBACTERIUM CHELONAE INFECTION
     Dosage: UNK

REACTIONS (1)
  - Acute kidney injury [Unknown]
